FAERS Safety Report 4646581-4 (Version None)
Quarter: 2005Q2

REPORT INFORMATION
  Report Type: 
  Country: None (occurrence: None)
  Receive Date: 20050427
  Receipt Date: 20050103
  Transmission Date: 20051028
  Serious: No
  Sender: FDA-Public Use
  Company Number: US-GLAXOSMITHKLINE-A0539105A

PATIENT
  Age: 16 Month
  Sex: Female

DRUGS (2)
  1. FLOVENT [Suspect]
     Dosage: 44MCG TWICE PER DAY
     Route: 055
  2. NO CONCURRENT MEDICATION [Concomitant]

REACTIONS (1)
  - MADAROSIS [None]
